FAERS Safety Report 9109471 (Version 3)
Quarter: 2013Q4

REPORT INFORMATION
  Report Type: Spontaneous
  Country: IN (occurrence: IN)
  Receive Date: 20130222
  Receipt Date: 20131023
  Transmission Date: 20140711
  Serious: Yes (Hospitalization, Other)
  Sender: FDA-Public Use
  Company Number: PHHY2013IN016263

PATIENT
  Age: 58 Year
  Sex: Female

DRUGS (5)
  1. ACLASTA [Suspect]
     Indication: OSTEOPOROTIC FRACTURE
     Dosage: UNK
     Route: 042
  2. PROPOFOL [Concomitant]
     Dosage: UNK
  3. RANTAC [Concomitant]
     Dosage: UNK
  4. TRAMAL [Concomitant]
     Dosage: UNK
  5. PYROLATE [Concomitant]
     Dosage: UNK

REACTIONS (8)
  - Wrist fracture [Unknown]
  - Radius fracture [Unknown]
  - Fall [Unknown]
  - Joint injury [Unknown]
  - Tenderness [Unknown]
  - Swelling [Unknown]
  - Deformity [Unknown]
  - Blood pressure increased [Unknown]
